FAERS Safety Report 9137694 (Version 1)
Quarter: 2013Q1

REPORT INFORMATION
  Report Type: Spontaneous
  Country: US (occurrence: US)
  Receive Date: 20130304
  Receipt Date: 20130304
  Transmission Date: 20140127
  Serious: Yes (Other)
  Sender: FDA-Public Use
  Company Number: US-ASTRAZENECA-2013SE12431

PATIENT
  Age: 52 Year
  Sex: Female
  Weight: 68 kg

DRUGS (9)
  1. CRESTOR [Suspect]
     Route: 048
     Dates: end: 20130206
  2. VIIBRYD [Suspect]
     Indication: DEPRESSION
     Route: 048
  3. VIIBRYD [Suspect]
     Indication: DEPRESSION
     Route: 048
  4. VIIBRYD [Suspect]
     Indication: DEPRESSION
     Route: 048
  5. VITAMIN D [Concomitant]
  6. DEXILANT [Concomitant]
  7. SUPPLEMENTS NOS [Concomitant]
  8. ATELVIA [Concomitant]
     Dates: start: 201301
  9. XANAX [Concomitant]

REACTIONS (9)
  - Gastroenteritis [Not Recovered/Not Resolved]
  - Weight decreased [Not Recovered/Not Resolved]
  - Nervousness [Not Recovered/Not Resolved]
  - Anxiety [Not Recovered/Not Resolved]
  - Restlessness [Not Recovered/Not Resolved]
  - Irritability [Not Recovered/Not Resolved]
  - Pain [Not Recovered/Not Resolved]
  - Abnormal faeces [Not Recovered/Not Resolved]
  - Asthenia [Not Recovered/Not Resolved]
